FAERS Safety Report 11208885 (Version 4)
Quarter: 2015Q4

REPORT INFORMATION
  Report Type: Report from Study
  Country: JP (occurrence: JP)
  Receive Date: 20150622
  Receipt Date: 20151104
  Transmission Date: 20160304
  Serious: Yes (Other)
  Sender: FDA-Public Use
  Company Number: JP-XENOPORT, INC.-2015JP003754

PATIENT
  Age: 62 Year
  Sex: Female

DRUGS (12)
  1. LYRICA [Concomitant]
     Active Substance: PREGABALIN
     Dosage: UNK
  2. PREDONINE [Concomitant]
     Active Substance: PREDNISOLONE\PREDNISOLONE ACETATE\PREDNISOLONE SODIUM SUCCINATE
     Dosage: UNK
  3. RIVOTRIL [Concomitant]
     Active Substance: CLONAZEPAM
     Dosage: 0.5 MG, BID
  4. METOLATE [Concomitant]
     Active Substance: METHOTREXATE
     Dosage: 4 MG, WEEKLY, TWICE/DAY
  5. HIRUDOID                           /00723701/ [Concomitant]
     Dosage: UNK
     Dates: start: 20140331
  6. SELTOUCH [Concomitant]
     Active Substance: FELBINAC
     Dosage: 1-2 SHEETS, ONCE DAILY
  7. REGNITE [Suspect]
     Active Substance: GABAPENTIN ENACARBIL
     Indication: RESTLESS LEGS SYNDROME
     Dosage: 300 MG, ONCE DAILY
     Route: 048
     Dates: start: 20130930
  8. LYRICA [Concomitant]
     Active Substance: PREGABALIN
     Dosage: UNK
  9. SELBEX [Concomitant]
     Active Substance: TEPRENONE
     Dosage: 50 MG, TID
  10. SAIREITO                           /08000901/ [Concomitant]
     Active Substance: HERBALS
     Dosage: 3 G, BID
     Dates: end: 20140119
  11. BONALON [Concomitant]
     Active Substance: ALENDRONATE SODIUM
     Dosage: UNK
  12. HIRUDOID                           /00723701/ [Concomitant]
     Dosage: UNK
     Dates: end: 20140331

REACTIONS (4)
  - Asthma [Recovering/Resolving]
  - Nasopharyngitis [Recovered/Resolved]
  - Influenza [Recovered/Resolved]
  - Pneumonia [Recovered/Resolved]

NARRATIVE: CASE EVENT DATE: 201402
